FAERS Safety Report 5648445-6 (Version None)
Quarter: 2008Q1

REPORT INFORMATION
  Report Type: 
  Country: None (occurrence: None)
  Receive Date: 20080303
  Receipt Date: 20080303
  Transmission Date: 20080703
  Serious: Yes (Life-Threatening)
  Sender: FDA-Public Use
  Company Number: None

PATIENT
  Sex: Male
  Weight: 79.3795 kg

DRUGS (1)
  1. TORADOL [Suspect]
     Indication: POSTOPERATIVE ANALGESIA
     Dates: start: 20041026, end: 20041029

REACTIONS (4)
  - GASTRIC PERFORATION [None]
  - HAEMORRHAGE [None]
  - POST PROCEDURAL COMPLICATION [None]
  - VASCULAR INJURY [None]
